FAERS Safety Report 7249847-7 (Version None)
Quarter: 2011Q1

REPORT INFORMATION
  Report Type: 
  Country: None (occurrence: None)
  Receive Date: 20110128
  Receipt Date: 20100503
  Transmission Date: 20110831
  Serious: No
  Sender: FDA-Public Use
  Company Number: A0865054A

PATIENT
  Age: 44 Year
  Sex: Female

DRUGS (2)
  1. NO CONCURRENT MEDICATION [Concomitant]
  2. WELLBUTRIN XL [Suspect]
     Dosage: 150MG PER DAY
     Route: 048
     Dates: start: 20100429, end: 20100501

REACTIONS (3)
  - PAIN [None]
  - MUSCULOSKELETAL PAIN [None]
  - FATIGUE [None]
